FAERS Safety Report 21068659 (Version 1)
Quarter: 2022Q3

REPORT INFORMATION
  Report Type: Spontaneous
  Country: US (occurrence: US)
  Receive Date: 20220712
  Receipt Date: 20220712
  Transmission Date: 20221026
  Serious: Yes (Hospitalization, Other)
  Sender: FDA-Public Use
  Company Number: US-Emergent Biosolutions-22000127

PATIENT

DRUGS (1)
  1. NALOXONE HYDROCHLORIDE [Suspect]
     Active Substance: NALOXONE HYDROCHLORIDE
     Indication: Overdose
     Dosage: RECEIVED MULTIPLE DOSES OF NALOXONE
     Route: 065

REACTIONS (2)
  - Acute pulmonary oedema [Unknown]
  - Drug ineffective [Unknown]
